FAERS Safety Report 10288322 (Version 4)
Quarter: 2016Q3

REPORT INFORMATION
  Report Type: Spontaneous
  Country: US (occurrence: US)
  Receive Date: 20140709
  Receipt Date: 20160729
  Transmission Date: 20161109
  Serious: Yes (Hospitalization, Other)
  Sender: FDA-Public Use
  Company Number: US-PFIZER INC-2014188229

PATIENT
  Age: 68 Year
  Sex: Female
  Weight: 88 kg

DRUGS (8)
  1. LYRICA [Suspect]
     Active Substance: PREGABALIN
     Indication: FIBROMYALGIA
     Dosage: UNK
     Route: 048
     Dates: end: 201411
  2. LYRICA [Suspect]
     Active Substance: PREGABALIN
     Indication: EPILEPSY
     Dosage: 150 MG, 3X/DAY
     Route: 048
     Dates: start: 201412
  3. PRIMIDONE. [Concomitant]
     Active Substance: PRIMIDONE
     Indication: EPILEPSY
     Dosage: 250 MG, 2X/DAY
  4. CARBAMAZEPINE. [Concomitant]
     Active Substance: CARBAMAZEPINE
     Dosage: 1000 MG, DAILY (200MG 2 IN THE MORNING, 2 AT NIGHT, AND 1 IN THE AFTERNOON)
  5. EPITOL [Concomitant]
     Active Substance: CARBAMAZEPINE
     Indication: EPILEPSY
     Dosage: 1000 MG, DAILY (200 MG, 2 IN THE MORNING, 2 AT NIGHT, AND 1 IN THE AFTERNOON)
  6. SUMATRIPTAN. [Concomitant]
     Active Substance: SUMATRIPTAN
     Indication: MIGRAINE
  7. CPAP [Concomitant]
     Active Substance: DEVICE
     Indication: SLEEP APNOEA SYNDROME
     Dosage: AT NIGHT
  8. LYRICA [Suspect]
     Active Substance: PREGABALIN
     Indication: NEUROPATHY PERIPHERAL
     Dosage: 150 MG, 3X/DAY
     Route: 048
     Dates: start: 2005

REACTIONS (10)
  - Wrist fracture [Unknown]
  - Gait disturbance [Unknown]
  - Drug effect decreased [Not Recovered/Not Resolved]
  - Dehydration [Recovered/Resolved]
  - Cyclic vomiting syndrome [Recovered/Resolved]
  - Bladder disorder [Recovered/Resolved]
  - Neuropathy peripheral [Unknown]
  - Condition aggravated [Unknown]
  - Fibromyalgia [Unknown]
  - Hepatic enzyme increased [Unknown]

NARRATIVE: CASE EVENT DATE: 2013
